FAERS Safety Report 18758373 (Version 1)
Quarter: 2021Q1

REPORT INFORMATION
  Report Type: Spontaneous
  Country: JP (occurrence: JP)
  Receive Date: 20210119
  Receipt Date: 20210119
  Transmission Date: 20210419
  Serious: Yes (Death)
  Sender: FDA-Public Use
  Company Number: JP-DSJP-DSJ-2021-101069

PATIENT
  Age: 67 Year
  Sex: Male

DRUGS (12)
  1. AMLODIPINE                         /00972402/ [Suspect]
     Active Substance: AMLODIPINE BESYLATE
     Indication: HYPERTENSION
     Dosage: 5 MG, QD
     Route: 048
  2. AMLODIPINE                         /00972402/ [Suspect]
     Active Substance: AMLODIPINE BESYLATE
     Indication: AORTIC ANEURYSM
  3. BAYASPIRIN [Suspect]
     Active Substance: ASPIRIN
     Indication: ANGINA PECTORIS
     Dosage: 100 MG, QD
     Route: 048
  4. TANATRIL [Suspect]
     Active Substance: IMIDAPRIL
     Indication: AORTIC ANEURYSM
  5. CLARUTE?R [Concomitant]
     Indication: AORTIC ANEURYSM
  6. PLETAAL [Suspect]
     Active Substance: CILOSTAZOL
     Indication: ANGINA PECTORIS
     Dosage: 100 MG, QD
     Route: 048
  7. CLARUTE?R [Concomitant]
     Indication: HYPERTENSION
     Dosage: 100 MG, BID
     Route: 048
  8. OLMETEC OD TABLETS 20MG [Suspect]
     Active Substance: OLMESARTAN MEDOXOMIL
     Indication: HYPERTENSION
     Dosage: 20 MG, QD
     Route: 048
     Dates: start: 20090127, end: 20090306
  9. GLORIAMIN                          /01184501/ [Concomitant]
     Indication: PROPHYLAXIS
     Dosage: 0.67 G, QD
     Route: 048
  10. PICLODIN [Concomitant]
     Active Substance: TICLOPIDINE HYDROCHLORIDE
     Indication: CEREBRAL INFARCTION
     Dosage: 100 MG, QD
     Route: 048
  11. OLMETEC OD TABLETS 20MG [Suspect]
     Active Substance: OLMESARTAN MEDOXOMIL
     Indication: AORTIC ANEURYSM
  12. TANATRIL [Suspect]
     Active Substance: IMIDAPRIL
     Indication: HYPERTENSION
     Dosage: 5 MG, QD
     Route: 048

REACTIONS (1)
  - Aortic aneurysm rupture [Fatal]

NARRATIVE: CASE EVENT DATE: 20090307
